FAERS Safety Report 8946042 (Version 2)
Quarter: 2016Q2

REPORT INFORMATION
  Report Type: Spontaneous
  Country: IT (occurrence: IT)
  Receive Date: 20121205
  Receipt Date: 20160516
  Transmission Date: 20160815
  Serious: Yes (Other)
  Sender: FDA-Public Use
  Company Number: IT-UCBSA-072274

PATIENT
  Sex: Female

DRUGS (6)
  1. VALPROATE [Suspect]
     Active Substance: VALPROIC ACID
     Indication: EPILEPSY
     Dosage: UNKNOWN DOSE
  2. SULTHIAME [Suspect]
     Active Substance: SULTHIAME
     Indication: EPILEPSY
     Dosage: UNKNOWN DOSE
  3. LEVETIRACETAM. [Suspect]
     Active Substance: LEVETIRACETAM
     Indication: EPILEPSY
     Dosage: UNKNOWN DOSE
  4. ETHOSUXIMIDE. [Suspect]
     Active Substance: ETHOSUXIMIDE
     Indication: EPILEPSY
     Dosage: UNKNOWN DOSE
  5. CLOBAZAM [Suspect]
     Active Substance: CLOBAZAM
     Indication: EPILEPSY
  6. DELTACORTENE [Suspect]
     Active Substance: PREDNISONE
     Indication: EPILEPSY
     Dosage: UNKNOWN DOSE

REACTIONS (6)
  - Abnormal behaviour [Unknown]
  - Psychomotor hyperactivity [Unknown]
  - Attention deficit/hyperactivity disorder [Unknown]
  - Seizure [Unknown]
  - Unevaluable event [Unknown]
  - Electroencephalogram abnormal [Unknown]
